FAERS Safety Report 11654619 (Version 1)
Quarter: 2015Q4

REPORT INFORMATION
  Report Type: Spontaneous
  Country: US (occurrence: None)
  Receive Date: 20151022
  Receipt Date: 20151022
  Transmission Date: 20160304
  Serious: Yes (Other)
  Sender: FDA-Public Use
  Company Number: None

PATIENT
  Age: 67 Year
  Sex: Female
  Weight: 61.24 kg

DRUGS (14)
  1. LEVOFLOXACIN 750 MG [Suspect]
     Active Substance: LEVOFLOXACIN
     Indication: BRONCHIECTASIS
     Route: 048
     Dates: start: 20150917, end: 20150923
  2. VITAMIN C [Concomitant]
     Active Substance: ASCORBIC ACID
  3. LIPITOR [Concomitant]
     Active Substance: ATORVASTATIN CALCIUM
  4. VIT B [Concomitant]
     Active Substance: VITAMINS
  5. FISH OIL [Concomitant]
     Active Substance: FISH OIL
  6. COSAMINE [Concomitant]
  7. SYNTHROID [Concomitant]
     Active Substance: LEVOTHYROXINE SODIUM
  8. BIOTIN [Concomitant]
     Active Substance: BIOTIN
  9. BETAMETHASONE GEL [Concomitant]
  10. DIOVAN [Concomitant]
     Active Substance: VALSARTAN
  11. CLARITIN [Concomitant]
     Active Substance: LORATADINE
  12. VIT. D [Concomitant]
  13. NEXIUM [Concomitant]
     Active Substance: ESOMEPRAZOLE MAGNESIUM
  14. CENTRUM SILVER [Concomitant]
     Active Substance: MINERALS\VITAMINS

REACTIONS (5)
  - Hypoaesthesia [None]
  - Pain [None]
  - Constipation [None]
  - Gastrointestinal disorder [None]
  - Paraesthesia [None]

NARRATIVE: CASE EVENT DATE: 20151005
